FAERS Safety Report 5708944-5 (Version None)
Quarter: 2008Q2

REPORT INFORMATION
  Report Type: 
  Country: None (occurrence: None)
  Receive Date: 20080414
  Receipt Date: 20080414
  Transmission Date: 20081010
  Serious: No
  Sender: FDA-Public Use
  Company Number: None

PATIENT
  Age: 46 Year
  Sex: Female
  Weight: 56.6996 kg

DRUGS (2)
  1. KLONOPIN [Suspect]
     Indication: MUSCLE SPASMS
     Dosage: 10
     Dates: start: 20050905, end: 20060406
  2. KLONOPIN [Suspect]
     Indication: TREMOR
     Dosage: 10
     Dates: start: 20050905, end: 20060406

REACTIONS (5)
  - APTYALISM [None]
  - DENTAL CARIES [None]
  - DRY THROAT [None]
  - ECONOMIC PROBLEM [None]
  - TOOTH DISORDER [None]
